FAERS Safety Report 14847244 (Version 2)
Quarter: 2018Q2

REPORT INFORMATION
  Report Type: Report from Study
  Country: BR (occurrence: BR)
  Receive Date: 20180504
  Receipt Date: 20180601
  Transmission Date: 20180711
  Serious: Yes (Other)
  Sender: FDA-Public Use
  Company Number: PHHY2017BR111095

PATIENT
  Age: 82 Year
  Sex: Female

DRUGS (5)
  1. XOLAIR [Suspect]
     Active Substance: OMALIZUMAB
     Dosage: 1 DF, EVERY 15 DAYS
     Route: 065
  2. XOLAIR [Suspect]
     Active Substance: OMALIZUMAB
     Dosage: 2 DF , EVERY 15 DAYS
     Route: 058
  3. FORASEQ [Suspect]
     Active Substance: BUDESONIDE\FORMOTEROL FUMARATE
     Indication: ASTHMA
     Dosage: 1 DF, BID (ONE IN THE MORNING AND ONE AT NIGHT) SINCE 10 YEARS AGO
     Route: 065
  4. XOLAIR [Suspect]
     Active Substance: OMALIZUMAB
     Indication: ASTHMA
     Dosage: 2 DF , EVERY 15 DAYS
     Route: 065
  5. MIFLONIDE [Suspect]
     Active Substance: BUDESONIDE
     Indication: ASTHMA
     Dosage: 1 DF, BID (ONE IN THE MORNING AND ONE AT NIGHT) SINCE 4 YEARS AGO
     Route: 065

REACTIONS (10)
  - Dysphonia [Unknown]
  - Dyspnoea [Unknown]
  - Hand fracture [Not Recovered/Not Resolved]
  - Asthmatic crisis [Recovering/Resolving]
  - Body height decreased [Unknown]
  - Pain in extremity [Not Recovered/Not Resolved]
  - Weight increased [Unknown]
  - Malaise [Recovering/Resolving]
  - Fatigue [Unknown]
  - Therapeutic response decreased [Not Recovered/Not Resolved]

NARRATIVE: CASE EVENT DATE: 20180319
